FAERS Safety Report 5174327-2 (Version None)
Quarter: 2006Q4

REPORT INFORMATION
  Report Type: 
  Country: None (occurrence: None)
  Receive Date: 20061214
  Receipt Date: 20060509
  Transmission Date: 20070319
  Serious: Yes (Other)
  Sender: FDA-Public Use
  Company Number: US-ELI_LILLY_AND_COMPANY-US200608006227

PATIENT
  Age: 58 Year
  Sex: Male
  Weight: 145.58 kg

DRUGS (6)
  1. QUETIAPINE FUMARATE [Concomitant]
     Dates: start: 19990101, end: 20040101
  2. RISPERIDONE [Concomitant]
     Dates: start: 19990101, end: 20010101
  3. DEPAKOTE [Concomitant]
     Dates: start: 20000101
  4. GLIPIZIDE [Concomitant]
     Dates: start: 20010101
  5. GLUCOVANCE [Concomitant]
     Dates: start: 20010101
  6. ZYPREXA [Suspect]
     Indication: BIPOLAR DISORDER
     Dosage: 40 MG, UNK
     Route: 065
     Dates: start: 19990101, end: 20050101

REACTIONS (15)
  - BLOOD CHOLESTEROL ABNORMAL [None]
  - BLOOD TRIGLYCERIDES INCREASED [None]
  - DIABETES MELLITUS [None]
  - GLYCOSURIA [None]
  - HYPERGLYCAEMIA [None]
  - HYPERPHAGIA [None]
  - HYPERTENSION [None]
  - HYPOGLYCAEMIA [None]
  - INSULIN RESISTANCE [None]
  - LACTIC ACIDOSIS [None]
  - METABOLIC DISORDER [None]
  - POLYDIPSIA [None]
  - POLYURIA [None]
  - PRESCRIBED OVERDOSE [None]
  - VISION BLURRED [None]
